FAERS Safety Report 8507217-5 (Version None)
Quarter: 2012Q3

REPORT INFORMATION
  Report Type: 
  Country: None (occurrence: None)
  Receive Date: 20120712
  Receipt Date: 20120706
  Transmission Date: 20120928
  Serious: Yes (Other)
  Sender: FDA-Public Use
  Company Number: JP-009507513-1206USA01524

PATIENT

DRUGS (5)
  1. ITRACONAZOLE [Interacting]
     Dosage: 50 MG, QD
     Route: 048
  2. ITRACONAZOLE [Interacting]
     Dosage: 100 MG, QD
     Route: 048
  3. MK-9350 [Concomitant]
     Route: 048
  4. CEFCAPENE PIVOXIL HYDROCHLORIDE [Concomitant]
     Route: 048
  5. PEPCID [Suspect]
     Route: 048

REACTIONS (1)
  - DRUG INTERACTION [None]
